FAERS Safety Report 22590103 (Version 1)
Quarter: 2023Q2

REPORT INFORMATION
  Report Type: Spontaneous
  Country: US (occurrence: US)
  Receive Date: 20230612
  Receipt Date: 20230612
  Transmission Date: 20230721
  Serious: Yes (Hospitalization)
  Sender: FDA-Public Use
  Company Number: US-LEO Pharma-352622

PATIENT
  Age: 75 Year
  Sex: Female

DRUGS (4)
  1. RINVOQ [Concomitant]
     Active Substance: UPADACITINIB
     Indication: Product used for unknown indication
     Dosage: NOT REPORTED
  2. HUMALOG MIX 50-50 KWIKPEN [Concomitant]
     Indication: Product used for unknown indication
  3. DEVICE [Suspect]
     Active Substance: DEVICE
     Indication: Product used for unknown indication
  4. ADBRY [Suspect]
     Active Substance: TRALOKINUMAB-LDRM
     Indication: Product used for unknown indication
     Dosage: 300 MG UNDER THE SKIN EVERY OTHER WEEK

REACTIONS (1)
  - Hospitalisation [Not Recovered/Not Resolved]

NARRATIVE: CASE EVENT DATE: 20221216
